FAERS Safety Report 8926825 (Version 1)
Quarter: 2012Q4

REPORT INFORMATION
  Report Type: Report from Study
  Country: JP (occurrence: JP)
  Receive Date: 20121127
  Receipt Date: 20121127
  Transmission Date: 20130627
  Serious: Yes (Hospitalization)
  Sender: FDA-Public Use
  Company Number: JP-VERTEX PHARMACEUTICAL INC.-AE-2012-000701

PATIENT
  Age: 69 Year
  Sex: Female

DRUGS (15)
  1. VX-950 (TELAPREVIR) [Suspect]
     Indication: CHRONIC HEPATITIS C
     Dosage: 1500 mg, qd
     Route: 048
     Dates: start: 20111206, end: 20120108
  2. PEGINTERFERON ALFA-2B [Suspect]
     Indication: CHRONIC HEPATITIS C
     Dosage: 1.4 ?g/kg, weekly
     Route: 058
     Dates: start: 20111206, end: 20120104
  3. REBETOL [Suspect]
     Indication: CHRONIC HEPATITIS C
     Dosage: 400 mg, qd
     Route: 048
     Dates: start: 20111206, end: 20120108
  4. DIOVAN [Concomitant]
     Dosage: 160 mg, qd
     Route: 048
  5. DIOVAN [Concomitant]
     Dosage: 80 mg, qd
     Route: 048
     Dates: start: 20111211
  6. AMLODIN [Concomitant]
     Dosage: 5 mg, qd
     Route: 048
  7. AMLODIN [Concomitant]
     Dosage: 2.5 mg, qd
     Route: 048
     Dates: start: 20111211
  8. SELBEX [Concomitant]
     Dosage: 150 mg, qd
     Route: 048
     Dates: start: 20111206, end: 20120109
  9. LOCHOL                             /01224502/ [Concomitant]
     Dosage: 20 mg, qd
     Route: 048
     Dates: start: 20111219, end: 20120109
  10. LENDORMIN [Concomitant]
     Dosage: 0.25 mg, prn
     Route: 048
     Dates: start: 20120114, end: 20120312
  11. CRAVIT [Concomitant]
     Dosage: UNK, qid
     Route: 031
     Dates: start: 20120111
  12. RINDERON                           /00008502/ [Concomitant]
     Dosage: UNK, qid
     Route: 031
     Dates: start: 20120111
  13. ALOSENN                            /00476901/ [Concomitant]
     Dosage: 0.5 g, prn
     Route: 048
     Dates: start: 20120115, end: 20120312
  14. DOGMATYL [Concomitant]
     Route: 048
  15. ZYLORIC [Concomitant]
     Route: 048
     Dates: end: 20120109

REACTIONS (4)
  - Erythema multiforme [Recovered/Resolved]
  - Pyrexia [Recovered/Resolved]
  - Nausea [Recovered/Resolved]
  - Blood uric acid increased [Recovered/Resolved]
